FAERS Safety Report 9438223 (Version 1)
Quarter: 2013Q3

REPORT INFORMATION
  Report Type: Spontaneous
  Country: US (occurrence: US)
  Receive Date: 20130802
  Receipt Date: 20130802
  Transmission Date: 20140515
  Serious: No
  Sender: FDA-Public Use
  Company Number: US-BRISTOL-MYERS SQUIBB COMPANY-16981730

PATIENT
  Age: 65 Year
  Sex: Female

DRUGS (2)
  1. COUMADIN [Suspect]
     Route: 065
  2. MENTHOL [Suspect]
     Dosage: ICY HOT PATCH
     Dates: start: 201208

REACTIONS (3)
  - Application site haematoma [Unknown]
  - Application site irritation [Unknown]
  - Application site discolouration [Unknown]
